FAERS Safety Report 24182721 (Version 1)
Quarter: 2024Q3

REPORT INFORMATION
  Report Type: Spontaneous
  Country: US (occurrence: US)
  Receive Date: 20240807
  Receipt Date: 20240807
  Transmission Date: 20241017
  Serious: Yes (Other)
  Sender: GLAND PHARMA
  Company Number: US-GLANDPHARMA-US-2024GLNLIT00574

PATIENT
  Age: 2 Year
  Sex: Male

DRUGS (4)
  1. CISPLATIN [Suspect]
     Active Substance: CISPLATIN
     Indication: Hepatoblastoma
     Route: 065
  2. DOXORUBICIN HYDROCHLORIDE [Suspect]
     Active Substance: DOXORUBICIN HYDROCHLORIDE
     Indication: Hepatoblastoma
     Route: 065
  3. FLUOROURACIL [Suspect]
     Active Substance: FLUOROURACIL
     Indication: Hepatoblastoma
     Route: 065
  4. VINCRISTINE [Suspect]
     Active Substance: VINCRISTINE
     Indication: Hepatoblastoma
     Route: 065

REACTIONS (9)
  - Inferior vena caval occlusion [Recovered/Resolved]
  - Myelosuppression [Recovered/Resolved]
  - Nephropathy toxic [Recovered/Resolved]
  - Cardiac arrest [Recovered/Resolved]
  - Respiratory disorder [Recovered/Resolved]
  - Infection [Recovered/Resolved]
  - Condition aggravated [Recovered/Resolved]
  - Electrolyte imbalance [Recovered/Resolved]
  - Product use in unapproved indication [Unknown]
